FAERS Safety Report 24375127 (Version 3)
Quarter: 2024Q4

REPORT INFORMATION
  Report Type: Report from Study
  Country: US (occurrence: US)
  Receive Date: 20240928
  Receipt Date: 20241008
  Transmission Date: 20250115
  Serious: Yes (Hospitalization, Other)
  Sender: ABBVIE
  Company Number: US-ABBVIE-5937856

PATIENT
  Age: 68 Year
  Sex: Female
  Weight: 90 kg

DRUGS (1)
  1. VIBERZI [Suspect]
     Active Substance: ELUXADOLINE
     Indication: Irritable bowel syndrome
     Dosage: FORM STRENGTH: 100 MILLIGRAM
     Route: 048
     Dates: start: 2021

REACTIONS (2)
  - Abdominal hernia [Recovering/Resolving]
  - Post procedural infection [Recovering/Resolving]

NARRATIVE: CASE EVENT DATE: 20240904
